FAERS Safety Report 13350061 (Version 2)
Quarter: 2017Q2

REPORT INFORMATION
  Report Type: Report from Study
  Country: US (occurrence: US)
  Receive Date: 20170320
  Receipt Date: 20170411
  Transmission Date: 20170830
  Serious: Yes (Disabling, Other)
  Sender: FDA-Public Use
  Company Number: US-JAZZ-2017-US-002437

PATIENT
  Age: 56 Year
  Sex: Female

DRUGS (31)
  1. XYREM [Suspect]
     Active Substance: SODIUM OXYBATE
     Dosage: 4.5 G, BID
     Route: 048
     Dates: start: 200807
  2. TRAMADOL HCL [Concomitant]
     Active Substance: TRAMADOL HYDROCHLORIDE
  3. HYDROCHLOROTHIAZIDE. [Concomitant]
     Active Substance: HYDROCHLOROTHIAZIDE
  4. PROTONIX                           /00661201/ [Concomitant]
     Active Substance: OMEPRAZOLE
  5. CLARITIN [Concomitant]
     Active Substance: LORATADINE
  6. NORTRIPTYLINE HCL [Concomitant]
     Active Substance: NORTRIPTYLINE HYDROCHLORIDE
  7. AMILORIDE HCL [Concomitant]
     Active Substance: AMILORIDE HYDROCHLORIDE
  8. CALCIUM [Concomitant]
     Active Substance: CALCIUM
  9. METHYLIN [Concomitant]
     Active Substance: METHYLPHENIDATE HYDROCHLORIDE
  10. NEURONTIN [Concomitant]
     Active Substance: GABAPENTIN
  11. XYREM [Suspect]
     Active Substance: SODIUM OXYBATE
     Indication: CATAPLEXY
     Dosage: 3 G, BID
     Route: 048
     Dates: start: 200806, end: 2008
  12. CARVEDILOL. [Concomitant]
     Active Substance: CARVEDILOL
  13. CONCERTA [Concomitant]
     Active Substance: METHYLPHENIDATE HYDROCHLORIDE
  14. VICTOZA [Concomitant]
     Active Substance: LIRAGLUTIDE
  15. XYREM [Suspect]
     Active Substance: SODIUM OXYBATE
     Indication: NARCOLEPSY
     Dosage: 1.5 G, BID
     Route: 048
     Dates: start: 200804, end: 2008
  16. IBUPROFEN. [Concomitant]
     Active Substance: IBUPROFEN
  17. CITALOPRAM [Concomitant]
     Active Substance: CITALOPRAM HYDROBROMIDE
  18. DETROL [Concomitant]
     Active Substance: TOLTERODINE TARTRATE
  19. PROZAC [Concomitant]
     Active Substance: FLUOXETINE HYDROCHLORIDE
  20. VITAMIN D3 [Concomitant]
     Active Substance: CHOLECALCIFEROL
  21. HYOSCYAMINE. [Concomitant]
     Active Substance: HYOSCYAMINE
  22. VENTOLIN HFA [Concomitant]
     Active Substance: ALBUTEROL SULFATE
  23. DYAZIDE [Concomitant]
     Active Substance: HYDROCHLOROTHIAZIDE\TRIAMTERENE
  24. ESTROGEN [Concomitant]
     Active Substance: ESTROGENS
  25. PERCOCET                           /00446701/ [Concomitant]
     Active Substance: ACETAMINOPHEN\OXYCODONE HYDROCHLORIDE\OXYCODONE TEREPHTHALATE
  26. XYREM [Suspect]
     Active Substance: SODIUM OXYBATE
     Dosage: UNK
     Route: 048
  27. FOCALIN [Concomitant]
     Active Substance: DEXMETHYLPHENIDATE HYDROCHLORIDE
  28. MOTRIN [Concomitant]
     Active Substance: IBUPROFEN
  29. AMITRIPTYLINE HCL [Concomitant]
     Active Substance: AMITRIPTYLINE
  30. REGLAN [Concomitant]
     Active Substance: METOCLOPRAMIDE HYDROCHLORIDE
  31. SULAR [Concomitant]
     Active Substance: NISOLDIPINE

REACTIONS (8)
  - Feeling abnormal [Not Recovered/Not Resolved]
  - Hypertension [Recovered/Resolved]
  - Daydreaming [Not Recovered/Not Resolved]
  - Weight decreased [Not Recovered/Not Resolved]
  - Dental care [Unknown]
  - Musculoskeletal disorder [Unknown]
  - Mental impairment [Not Recovered/Not Resolved]
  - Intentional product use issue [Unknown]

NARRATIVE: CASE EVENT DATE: 201605
